FAERS Safety Report 10968356 (Version 1)
Quarter: 2015Q1

REPORT INFORMATION
  Report Type: Spontaneous
  Country: US (occurrence: US)
  Receive Date: 20150330
  Receipt Date: 20150330
  Transmission Date: 20150721
  Serious: Yes (Hospitalization, Other)
  Sender: FDA-Public Use
  Company Number: PHHY2015US033522

PATIENT
  Age: 22 Year
  Sex: Female

DRUGS (8)
  1. METAXALONE. [Suspect]
     Active Substance: METAXALONE
     Indication: PRODUCT USED FOR UNKNOWN INDICATION
     Dosage: 800 MG, TID
     Route: 065
  2. PAROXETINE [Suspect]
     Active Substance: PAROXETINE\PAROXETINE HYDROCHLORIDE
     Indication: PRODUCT USED FOR UNKNOWN INDICATION
     Route: 065
  3. HYDROCODONE BITARTRATE AND ACETAMINOPHEN [Concomitant]
     Active Substance: ACETAMINOPHEN\HYDROCODONE BITARTRATE
     Indication: PRODUCT USED FOR UNKNOWN INDICATION
     Dosage: 330 MG Q6 PRN
     Route: 065
  4. AMITRIPTYLINE [Concomitant]
     Active Substance: AMITRIPTYLINE
     Indication: PRODUCT USED FOR UNKNOWN INDICATION
     Dosage: 25 MG, QD
     Route: 065
  5. MEDROXYPROGESTERONE [Concomitant]
     Active Substance: MEDROXYPROGESTERONE
     Indication: PRODUCT USED FOR UNKNOWN INDICATION
     Dosage: 1 DF, Q3MO
     Route: 065
  6. ETHINYLESTRADIOL W/NORELGESTROMIN [Concomitant]
     Indication: PRODUCT USED FOR UNKNOWN INDICATION
     Route: 065
  7. CLONAZEPAM. [Concomitant]
     Active Substance: CLONAZEPAM
     Indication: PRODUCT USED FOR UNKNOWN INDICATION
     Dosage: 0.5 MG, QID
     Route: 065
  8. DICLOFENAC [Concomitant]
     Active Substance: DICLOFENAC
     Indication: PRODUCT USED FOR UNKNOWN INDICATION
     Dosage: 50 MG, BID
     Route: 065

REACTIONS (16)
  - Hyperreflexia [Recovered/Resolved]
  - Clonus [Recovered/Resolved]
  - Agitation [Unknown]
  - Hyperhidrosis [Unknown]
  - Hypertonia [Recovered/Resolved]
  - Mydriasis [Unknown]
  - Overdose [Unknown]
  - Depressed level of consciousness [Recovered/Resolved]
  - Supraventricular tachycardia [Unknown]
  - Mucosal dryness [Unknown]
  - Serotonin syndrome [Unknown]
  - Seizure [Recovered/Resolved]
  - Mental status changes [Unknown]
  - Flushing [Unknown]
  - Muscle rigidity [Recovered/Resolved]
  - Body temperature increased [Unknown]
